FAERS Safety Report 16323909 (Version 5)
Quarter: 2019Q4

REPORT INFORMATION
  Report Type: Spontaneous
  Country: US (occurrence: US)
  Receive Date: 20190517
  Receipt Date: 20191015
  Transmission Date: 20200122
  Serious: Yes (Hospitalization, Other)
  Sender: FDA-Public Use
  Company Number: US-CIPLA LTD.-2019US03593

PATIENT

DRUGS (12)
  1. GABAPENTIN. [Suspect]
     Active Substance: GABAPENTIN
     Indication: NECK PAIN
     Dosage: 1000 MILLIGRAM, PRN (EVERY 8 HOURS)
     Route: 048
  2. MS CONTIN [Interacting]
     Active Substance: MORPHINE SULFATE
     Indication: NECK PAIN
     Dosage: 60 MILLIGRAM, PRN (EVERY 12 HOURS)
     Route: 048
  3. INSULIN [Concomitant]
     Active Substance: INSULIN NOS
     Indication: TYPE 2 DIABETES MELLITUS
     Dosage: UNK, WITH MEALS
     Route: 065
  4. PERCOCET [Interacting]
     Active Substance: ACETAMINOPHEN\OXYCODONE HYDROCHLORIDE
     Indication: NECK PAIN
     Dosage: 10/325 MG FOUR TIMES A DAY AS NEEDED, PRN
     Route: 048
  5. METFORMIN [Concomitant]
     Active Substance: METFORMIN HYDROCHLORIDE
     Indication: TYPE 2 DIABETES MELLITUS
     Dosage: 1000 (UNITS UNSPECIFIED), BID
     Route: 065
  6. LEVOTHYROXINE. [Concomitant]
     Active Substance: LEVOTHYROXINE
     Indication: HYPOTHYROIDISM
     Dosage: 100 MCG, QD
     Route: 048
  7. MS CONTIN [Interacting]
     Active Substance: MORPHINE SULFATE
     Indication: BACK PAIN
  8. GABAPENTIN. [Interacting]
     Active Substance: GABAPENTIN
     Indication: BACK PAIN
  9. VALSARTAN. [Concomitant]
     Active Substance: VALSARTAN
     Indication: HYPERTENSION
     Dosage: 160 MILLIGRAM, QD
     Route: 048
  10. OMEPRAZOLE. [Concomitant]
     Active Substance: OMEPRAZOLE
     Indication: GASTROOESOPHAGEAL REFLUX DISEASE
     Dosage: 40 MILLIGRAM, QD (IN THE MORNING)
     Route: 048
  11. PERCOCET [Interacting]
     Active Substance: ACETAMINOPHEN\OXYCODONE HYDROCHLORIDE
     Indication: BACK PAIN
  12. NIACIN. [Concomitant]
     Active Substance: NIACIN
     Indication: HYPERLIPIDAEMIA
     Dosage: 1 GRAM, BID
     Route: 065

REACTIONS (12)
  - Overdose [Unknown]
  - Withdrawal syndrome [Recovered/Resolved]
  - Encephalopathy [Recovered/Resolved]
  - Toxicity to various agents [Recovered/Resolved]
  - Acute respiratory failure [Recovered/Resolved]
  - Medication error [Unknown]
  - Agitation [Recovered/Resolved]
  - Off label use [Unknown]
  - Drug interaction [Unknown]
  - Product use in unapproved indication [Unknown]
  - Acute kidney injury [Recovered/Resolved]
  - Respiratory acidosis [Recovered/Resolved]
